FAERS Safety Report 6767189-0 (Version None)
Quarter: 2010Q2

REPORT INFORMATION
  Report Type: 
  Country: None (occurrence: None)
  Receive Date: 20100614
  Receipt Date: 20100607
  Transmission Date: 20101027
  Serious: Yes (Other)
  Sender: FDA-Public Use
  Company Number: US-JNJFOC-20100602612

PATIENT
  Sex: Male
  Weight: 68.04 kg

DRUGS (4)
  1. FENTANYL [Suspect]
     Indication: PAIN
     Route: 062
  2. FENTANYL [Suspect]
     Route: 062
  3. FENTANYL [Suspect]
     Route: 062
  4. NORCO [Concomitant]
     Indication: BREAKTHROUGH PAIN
     Dosage: 10/325MG/ 1-2 AS NEEDED
     Route: 048

REACTIONS (7)
  - ADVERSE EVENT [None]
  - ANXIETY [None]
  - APPLICATION SITE PRURITUS [None]
  - CATHETER PLACEMENT [None]
  - DRUG INEFFECTIVE [None]
  - METASTASES TO LYMPH NODES [None]
  - NAUSEA [None]
